FAERS Safety Report 17253863 (Version 1)
Quarter: 2020Q1

REPORT INFORMATION
  Report Type: Spontaneous
  Country: US (occurrence: US)
  Receive Date: 20200109
  Receipt Date: 20200109
  Transmission Date: 20200409
  Serious: Yes (Other)
  Sender: FDA-Public Use
  Company Number: US-AMNEAL PHARMACEUTICALS-2019-AMRX-02417

PATIENT
  Age: 46 Year
  Sex: Female
  Weight: 112.03 kg

DRUGS (5)
  1. EPIPEN [Concomitant]
     Active Substance: EPINEPHRINE
     Indication: FOOD ALLERGY
     Dosage: 0.3 MILLIGRAM, AS NEEDED
     Route: 030
  2. ELAGOLIX [Suspect]
     Active Substance: ELAGOLIX
     Indication: UTERINE LEIOMYOMA
     Dosage: 300 MILLIGRAM, 2X/DAY
     Route: 048
     Dates: start: 20171027, end: 20180216
  3. ACTIVELLA [Suspect]
     Active Substance: ESTRADIOL\NORETHINDRONE ACETATE
     Indication: UTERINE LEIOMYOMA
     Dosage: 1 DOSAGE FORM, 1X/DAY
     Route: 048
     Dates: start: 20171027, end: 20180216
  4. TYLENOL [Concomitant]
     Active Substance: ACETAMINOPHEN
     Indication: BACK PAIN
  5. TYLENOL [Concomitant]
     Active Substance: ACETAMINOPHEN
     Indication: HEADACHE
     Dosage: UNK
     Route: 048
     Dates: start: 2000

REACTIONS (1)
  - Breast cancer stage II [Not Recovered/Not Resolved]

NARRATIVE: CASE EVENT DATE: 20171129
